FAERS Safety Report 25638605 (Version 3)
Quarter: 2025Q4

REPORT INFORMATION
  Report Type: Spontaneous
  Country: US (occurrence: US)
  Receive Date: 20250804
  Receipt Date: 20251217
  Transmission Date: 20260117
  Serious: Yes (Other)
  Sender: AURINIA PHARMACEUTICALS
  Company Number: US-OTSUKA PHARMACEUTICAL NETHERLANDS B.V.-AUR-008113

PATIENT
  Age: 45 Year
  Sex: Female

DRUGS (2)
  1. LUPKYNIS [Suspect]
     Active Substance: VOCLOSPORIN
     Indication: Lupus nephritis
     Dosage: 7.9 MILLIGRAM, BID
     Route: 061
  2. LUPKYNIS [Suspect]
     Active Substance: VOCLOSPORIN
     Dosage: 23.7 MILLIGRAM, BID
     Route: 061

REACTIONS (10)
  - End stage renal disease [Not Recovered/Not Resolved]
  - Syncope [Not Recovered/Not Resolved]
  - Renal impairment [Unknown]
  - Memory impairment [Not Recovered/Not Resolved]
  - Hypersomnia [Unknown]
  - Nasopharyngitis [Not Recovered/Not Resolved]
  - Laboratory test abnormal [Unknown]
  - Incorrect dose administered [Unknown]
  - Product storage error [Unknown]
  - Product packaging difficult to open [Unknown]

NARRATIVE: CASE EVENT DATE: 20251101
